FAERS Safety Report 6437197-8 (Version None)
Quarter: 2009Q4

REPORT INFORMATION
  Report Type: 
  Country: None (occurrence: None)
  Receive Date: 20091112
  Receipt Date: 20090721
  Transmission Date: 20100525
  Serious: No
  Sender: FDA-Public Use
  Company Number: A0799395A

PATIENT
  Age: 57 Year
  Sex: Male

DRUGS (2)
  1. TREXIMET [Suspect]
     Indication: MIGRAINE
     Dosage: 1TAB AS REQUIRED
     Route: 048
     Dates: start: 20090623, end: 20090716
  2. UNKNOWN [Concomitant]

REACTIONS (2)
  - HAEMATOSPERMIA [None]
  - PROSTATE INFECTION [None]
